FAERS Safety Report 6172186-2 (Version None)
Quarter: 2009Q2

REPORT INFORMATION
  Report Type: 
  Country: None (occurrence: None)
  Receive Date: 20090429
  Receipt Date: 20080930
  Transmission Date: 20091009
  Serious: No
  Sender: FDA-Public Use
  Company Number: A0750710A

PATIENT
  Sex: Male

DRUGS (5)
  1. ZOFRAN [Suspect]
     Indication: NAUSEA
  2. ZOFRAN [Suspect]
  3. ZOFRAN [Suspect]
  4. REGLAN [Concomitant]
  5. PHENERGAN [Concomitant]

REACTIONS (3)
  - ABDOMINAL PAIN [None]
  - DRUG EXPOSURE DURING PREGNANCY [None]
  - IRRITABILITY [None]
